FAERS Safety Report 7821979-1 (Version None)
Quarter: 2011Q4

REPORT INFORMATION
  Report Type: 
  Country: None (occurrence: None)
  Receive Date: 20111018
  Receipt Date: 20100825
  Transmission Date: 20120403
  Serious: No
  Sender: FDA-Public Use
  Company Number: US-ASTRAZENECA-2010SE40127

PATIENT
  Age: 11 Year
  Sex: Male
  Weight: 53.5 kg

DRUGS (4)
  1. ALBUTEROL [Concomitant]
  2. SYMBICORT [Suspect]
     Dosage: 160/4.5, ONE PUFF BID
     Route: 055
  3. SYMBICORT [Suspect]
     Dosage: 160/4.5,  TWO PUFFS BID
     Route: 055
     Dates: start: 20090101
  4. SYMBICORT [Suspect]
     Dosage: 160/4.5,  TWO PUFFS BID
     Route: 055
     Dates: start: 20090101

REACTIONS (4)
  - ASTHMA [None]
  - DRUG DOSE OMISSION [None]
  - WHEEZING [None]
  - COUGH [None]
